FAERS Safety Report 11237656 (Version 2)
Quarter: 2021Q3

REPORT INFORMATION
  Report Type: Other
  Country: IT (occurrence: IT)
  Receive Date: 20150703
  Receipt Date: 20210709
  Transmission Date: 20211014
  Serious: Yes (Other)
  Sender: FDA-Public Use
  Company Number: IT-ROCHE-645980

PATIENT

DRUGS (8)
  1. MYCOPHENOLATE MOFETIL. [Suspect]
     Active Substance: MYCOPHENOLATE MOFETIL
     Indication: PROPHYLAXIS AGAINST TRANSPLANT REJECTION
     Route: 065
  2. MYCOPHENOLATE MOFETIL. [Suspect]
     Active Substance: MYCOPHENOLATE MOFETIL
     Route: 065
  3. CICLOSPORIN [Suspect]
     Active Substance: CYCLOSPORINE
     Route: 048
  4. METHYLPREDNISOLONE. [Suspect]
     Active Substance: METHYLPREDNISOLONE
     Indication: PROPHYLAXIS AGAINST TRANSPLANT REJECTION
     Dosage: DAYS 0 TO 4 (500 MG ON DAY 0, 200 MG ON DAYS 1 AND 2, 150 ON DAY 3, AND 100 MG ON DAY 4)
     Route: 042
  5. PREDNISONE. [Suspect]
     Active Substance: PREDNISONE
     Indication: PROPHYLAXIS AGAINST TRANSPLANT REJECTION
     Dosage: ON DAY 5
     Route: 048
  6. PREDNISONE. [Suspect]
     Active Substance: PREDNISONE
     Dosage: DAY 6
     Route: 048
  7. CICLOSPORIN [Suspect]
     Active Substance: CYCLOSPORINE
     Indication: PROPHYLAXIS AGAINST TRANSPLANT REJECTION
     Route: 042
  8. METHYLPREDNISOLONE. [Suspect]
     Active Substance: METHYLPREDNISOLONE
     Dosage: 20 MG DAILY FROM DAYS 7 TO 11, 16 MG DAILY FROM DAYS 12 TO 60, 12 MG DAILY FROM DAYS 61 TO 120 AND 8
     Route: 048

REACTIONS (18)
  - Transplant rejection [Unknown]
  - Anaemia [Unknown]
  - Neoplasm [Unknown]
  - Cytomegalovirus infection reactivation [Unknown]
  - Graft loss [Unknown]
  - Cardiac disorder [Unknown]
  - Diabetes mellitus [Unknown]
  - Infection [Unknown]
  - Affective disorder [Unknown]
  - Renal neoplasm [Unknown]
  - Thrombocytopenia [Unknown]
  - Neoplasm skin [Unknown]
  - Cytomegalovirus infection [Unknown]
  - Nervous system disorder [Unknown]
  - Delayed graft function [Unknown]
  - Leukopenia [Unknown]
  - Transplant dysfunction [Unknown]
  - Neoplasm malignant [Unknown]
